FAERS Safety Report 5186940-7 (Version None)
Quarter: 2006Q4

REPORT INFORMATION
  Report Type: 
  Country: None (occurrence: None)
  Receive Date: 20061213
  Receipt Date: 20061204
  Transmission Date: 20070319
  Serious: Yes (Death, Hospitalization, Other)
  Sender: FDA-Public Use
  Company Number: 2005135070

PATIENT
  Age: 55 Year
  Sex: Male

DRUGS (3)
  1. NEURONTIN [Suspect]
     Indication: BACK PAIN
     Dosage: 300 MG
     Dates: start: 20000425
  2. NEURONTIN [Suspect]
     Indication: BIPOLAR DISORDER
     Dosage: 300 MG
     Dates: start: 20000425
  3. ALPRAZOLAM [Suspect]
     Indication: BACK PAIN
     Dates: start: 19980506

REACTIONS (10)
  - ACCIDENTAL DEATH [None]
  - ANXIETY [None]
  - BACK PAIN [None]
  - COMPLETED SUICIDE [None]
  - DEPRESSION [None]
  - DISEASE RECURRENCE [None]
  - DRUG INEFFECTIVE [None]
  - DRUG TOXICITY [None]
  - OVERDOSE [None]
  - SUBSTANCE ABUSE [None]
